FAERS Safety Report 8823604 (Version 1)
Quarter: 2012Q4

REPORT INFORMATION
  Report Type: 
  Country: CA (occurrence: CA)
  Receive Date: 20121003
  Receipt Date: 20121003
  Transmission Date: 20130627
  Serious: Yes (Other)
  Sender: FDA-Public Use
  Company Number: CHPA2012CA020492

PATIENT
  Sex: Male

DRUGS (2)
  1. EXACT TRANSDERMAL NICOTINE PATCH [Suspect]
     Indication: SMOKING CESSATION THERAPY
     Dosage: 21 mg, QD
     Route: 062
     Dates: start: 20120923
  2. EXACT TRANSDERMAL NICOTINE PATCH [Suspect]
     Dosage: 21 mg, QD
     Route: 062
     Dates: start: 2011

REACTIONS (5)
  - Bladder cancer [Not Recovered/Not Resolved]
  - Nightmare [Recovered/Resolved]
  - Application site pruritus [Not Recovered/Not Resolved]
  - Application site pain [Recovered/Resolved]
  - Drug administered at inappropriate site [Unknown]
